FAERS Safety Report 7499468-6 (Version None)
Quarter: 2011Q2

REPORT INFORMATION
  Report Type: 
  Country: None (occurrence: None)
  Receive Date: 20110524
  Receipt Date: 20110519
  Transmission Date: 20111010
  Serious: Yes (Death, Hospitalization)
  Sender: FDA-Public Use
  Company Number: PHHY2010MX31193

PATIENT
  Sex: Female

DRUGS (2)
  1. ZOMETA [Suspect]
     Dosage: 4 MG, QMO
     Route: 042
  2. ZOMETA [Suspect]
     Indication: HEPATIC NEOPLASM MALIGNANT
     Dosage: 4 MG, QMO
     Route: 042

REACTIONS (3)
  - DISEASE PROGRESSION [None]
  - MYOCARDIAL INFARCTION [None]
  - NEOPLASM MALIGNANT [None]
